FAERS Safety Report 6539862-0 (Version None)
Quarter: 2010Q1

REPORT INFORMATION
  Report Type: 
  Country: None (occurrence: None)
  Receive Date: 20100115
  Receipt Date: 20100104
  Transmission Date: 20100710
  Serious: Yes (Other)
  Sender: FDA-Public Use
  Company Number: GB-WATSON-2010-00099

PATIENT
  Age: 9 Year
  Sex: Female

DRUGS (2)
  1. TOPIRAMATE [Suspect]
     Indication: CONVULSION
     Dosage: 9 MG/KG, DAILY
  2. TOPIRAMATE [Suspect]
     Dosage: 5.0 MG, UNK

REACTIONS (1)
  - ALLODYNIA [None]
